FAERS Safety Report 9129265 (Version 1)
Quarter: 2013Q1

REPORT INFORMATION
  Report Type: Spontaneous
  Country: US (occurrence: US)
  Receive Date: 20130228
  Receipt Date: 20130228
  Transmission Date: 20140127
  Serious: Yes (Hospitalization, Other)
  Sender: FDA-Public Use
  Company Number: CHPA2013US003558

PATIENT
  Age: 64 Year
  Sex: Female

DRUGS (1)
  1. EXCEDRIN TENSION HEADACHE [Suspect]
     Indication: MIGRAINE
     Dosage: 1 DF, PRN (3-4 IN AN MONTH)
     Route: 048
     Dates: start: 2004

REACTIONS (3)
  - Myocardial infarction [Unknown]
  - Expired drug administered [Unknown]
  - Underdose [Unknown]
